FAERS Safety Report 16145597 (Version 1)
Quarter: 2019Q2

REPORT INFORMATION
  Report Type: Spontaneous
  Country: US (occurrence: US)
  Receive Date: 20190402
  Receipt Date: 20190402
  Transmission Date: 20190711
  Serious: Yes (Life-Threatening, Hospitalization, Other)
  Sender: FDA-Public Use
  Company Number: US-AUROBINDO-AUR-APL-2019-016669

PATIENT

DRUGS (4)
  1. OXACILLIN [Suspect]
     Active Substance: OXACILLIN SODIUM
     Indication: PRODUCT USED FOR UNKNOWN INDICATION
     Dosage: UNK
     Route: 065
  2. RIFAMPIN. [Concomitant]
     Active Substance: RIFAMPIN
     Indication: SEPSIS
     Dosage: UNK
     Route: 065
  3. OXACILLIN [Suspect]
     Active Substance: OXACILLIN SODIUM
     Indication: EXTRADURAL ABSCESS
  4. RIFAMPIN. [Concomitant]
     Active Substance: RIFAMPIN
     Indication: EXTRADURAL ABSCESS

REACTIONS (12)
  - Pyrexia [Not Recovered/Not Resolved]
  - Eosinophilia [Unknown]
  - Drug reaction with eosinophilia and systemic symptoms [Unknown]
  - Discomfort [Unknown]
  - C-reactive protein increased [Unknown]
  - Leukopenia [Recovered/Resolved]
  - Chills [Unknown]
  - Leukocytosis [Unknown]
  - Red blood cell sedimentation rate increased [Unknown]
  - Rash [Recovered/Resolved]
  - Tachycardia [Unknown]
  - Agranulocytosis [Unknown]
